FAERS Safety Report 4879357-3 (Version None)
Quarter: 2006Q1

REPORT INFORMATION
  Report Type: 
  Country: None (occurrence: None)
  Receive Date: 20060112
  Receipt Date: 20051117
  Transmission Date: 20060701
  Serious: Yes (Disabling)
  Sender: FDA-Public Use
  Company Number: US-MERCK-0511USA03088

PATIENT
  Age: 53 Year
  Sex: Female

DRUGS (2)
  1. VIOXX [Suspect]
     Indication: PAIN
     Route: 048
     Dates: start: 20020926, end: 20030701
  2. VIOXX [Suspect]
     Indication: INFLAMMATION
     Route: 048
     Dates: start: 20020926, end: 20030701

REACTIONS (5)
  - BREAST CANCER [None]
  - BREAST DISORDER [None]
  - BREAST HAEMORRHAGE [None]
  - DYSPNOEA [None]
  - ROTATOR CUFF SYNDROME [None]
